FAERS Safety Report 12384950 (Version 1)
Quarter: 2016Q2

REPORT INFORMATION
  Report Type: Spontaneous
  Country: PT (occurrence: PT)
  Receive Date: 20160519
  Receipt Date: 20160519
  Transmission Date: 20160815
  Serious: Yes (Hospitalization)
  Sender: FDA-Public Use
  Company Number: PT-FERRINGPH-2016FE02117

PATIENT

DRUGS (11)
  1. SOMATROPIN [Suspect]
     Active Substance: SOMATROPIN
     Indication: PRODUCT USED FOR UNKNOWN INDICATION
     Dosage: 10 IU, DAILY
     Route: 065
  2. NANDROLONE [Suspect]
     Active Substance: NANDROLONE
     Indication: PRODUCT USED FOR UNKNOWN INDICATION
     Dosage: 600 MG TWICE A WEEK
     Route: 065
  3. TESTOSTERONE CYPIONATE. [Suspect]
     Active Substance: TESTOSTERONE CYPIONATE
     Indication: PRODUCT USED FOR UNKNOWN INDICATION
     Dosage: 400 MG TWICE A WEEK
     Route: 065
  4. TRENBOLONE [Suspect]
     Active Substance: TRENBOLONE
     Indication: PRODUCT USED FOR UNKNOWN INDICATION
     Dosage: 200 MG THRICE A WEEK
     Route: 065
  5. CLENBUTEROL [Suspect]
     Active Substance: CLENBUTEROL
     Indication: PRODUCT USED FOR UNKNOWN INDICATION
     Dosage: 0.08 MG, DAILY
     Route: 065
  6. STANOZOLOL [Suspect]
     Active Substance: STANOZOLOL
     Indication: PRODUCT USED FOR UNKNOWN INDICATION
     Dosage: 100 MG THRICE A WEEK
     Route: 065
  7. MESTEROLONE [Suspect]
     Active Substance: MESTEROLONE
     Indication: PRODUCT USED FOR UNKNOWN INDICATION
     Dosage: 50 MG, DAILY
     Route: 065
  8. DROSTANOLONE [Suspect]
     Active Substance: DROMOSTANOLONE
     Indication: PRODUCT USED FOR UNKNOWN INDICATION
     Dosage: 200 MG THRICE A WEEK
     Route: 065
  9. TESTOSTERONE PROPIONATE. [Suspect]
     Active Substance: TESTOSTERONE PROPIONATE
     Indication: PRODUCT USED FOR UNKNOWN INDICATION
     Dosage: 100 MG THRICE A WEEK
     Route: 065
  10. OXANDROLONE. [Suspect]
     Active Substance: OXANDROLONE
     Indication: PRODUCT USED FOR UNKNOWN INDICATION
     Dosage: 40 MG, DAILY
     Route: 065
  11. METHENOLONE [Suspect]
     Active Substance: METHENOLONE
     Indication: PRODUCT USED FOR UNKNOWN INDICATION
     Dosage: 200 MG TWICE A WEEK
     Route: 065

REACTIONS (2)
  - Intentional product misuse [Recovered/Resolved]
  - Acute myocardial infarction [Recovered/Resolved]
